FAERS Safety Report 9376051 (Version 2)
Quarter: 2013Q3

REPORT INFORMATION
  Report Type: Spontaneous
  Country: JP (occurrence: JP)
  Receive Date: 20130629
  Receipt Date: 20130718
  Transmission Date: 20140515
  Serious: Yes (Hospitalization, Other)
  Sender: FDA-Public Use
  Company Number: JP-009507513-1306JPN013279

PATIENT
  Age: 34 Year
  Sex: Male
  Weight: 96 kg

DRUGS (9)
  1. PEGINTRON [Suspect]
     Indication: CHRONIC HEPATITIS C
     Dosage: 1.5 MICROGRAM/KG/WEEK
     Route: 058
     Dates: start: 20130122, end: 20130204
  2. PEGINTRON [Suspect]
     Dosage: 1.0 MICROGRAM/KG/WEEK
     Route: 058
     Dates: start: 20130212, end: 20130430
  3. REBETOL [Suspect]
     Indication: CHRONIC HEPATITIS C
     Dosage: 1000 MG 1/1 DAY
     Route: 048
     Dates: start: 20130122, end: 20130506
  4. TELAVIC [Suspect]
     Indication: CHRONIC HEPATITIS C
     Dosage: 2250 MG 1/1 DAY
     Route: 048
     Dates: start: 20130122, end: 20130414
  5. LOXONIN [Suspect]
     Dosage: 180 MG, QD
     Route: 048
     Dates: start: 20130123, end: 20130506
  6. OMEPRAZOLE [Suspect]
     Indication: PROPHYLAXIS
     Dosage: 20 MG, QD
     Route: 048
     Dates: start: 20130123, end: 20130607
  7. ZYLORIC [Suspect]
     Indication: ADVERSE REACTION
     Dosage: 200 MG, QD
     Route: 048
     Dates: start: 20130125, end: 20130506
  8. URSO [Concomitant]
     Indication: CHRONIC HEPATITIS C
     Dosage: 600 MG, QD
     Route: 048
     Dates: start: 20130218, end: 20130607
  9. URSO [Concomitant]
     Dosage: 300 MG, QD
     Route: 048
     Dates: start: 20130627

REACTIONS (2)
  - Jaundice [Not Recovered/Not Resolved]
  - Ascites [Not Recovered/Not Resolved]
